FAERS Safety Report 13839751 (Version 1)
Quarter: 2017Q3

REPORT INFORMATION
  Report Type: Spontaneous
  Country: US (occurrence: US)
  Receive Date: 20170805
  Receipt Date: 20170805
  Transmission Date: 20171127
  Serious: Yes (Death)
  Sender: FDA-Public Use
  Company Number: None

PATIENT
  Age: 78 Year
  Sex: Male
  Weight: 107.95 kg

DRUGS (2)
  1. PACLITAXEL. [Suspect]
     Active Substance: PACLITAXEL
     Indication: PANCREATIC CARCINOMA
     Route: 042
     Dates: start: 20170720, end: 20170720
  2. GEMCITABINE [Suspect]
     Active Substance: GEMCITABINE\GEMCITABINE HYDROCHLORIDE
     Indication: PANCREATIC CARCINOMA
     Route: 042
     Dates: start: 20170720, end: 20170720

REACTIONS (15)
  - Pancreatic carcinoma [None]
  - Oesophagitis [None]
  - Dyspnoea [None]
  - Haemodynamic instability [None]
  - Thrombocytopenia [None]
  - Dysphonia [None]
  - Laryngeal oedema [None]
  - Anticoagulation drug level above therapeutic [None]
  - Unresponsive to stimuli [None]
  - Pneumonia [None]
  - Aphasia [None]
  - Dysphagia [None]
  - Neutropenia [None]
  - Hyperhidrosis [None]
  - Blood pressure decreased [None]

NARRATIVE: CASE EVENT DATE: 20170724
